FAERS Safety Report 7542601-8 (Version None)
Quarter: 2011Q2

REPORT INFORMATION
  Report Type: 
  Country: None (occurrence: None)
  Receive Date: 20110606
  Receipt Date: 20110527
  Transmission Date: 20111010
  Serious: Yes (Other)
  Sender: FDA-Public Use
  Company Number: 2011SP008882

PATIENT
  Age: 22 Year
  Sex: Female

DRUGS (2)
  1. PREVIFEM [Concomitant]
  2. NUVARING [Suspect]
     Indication: CONTRACEPTION
     Dosage: VAG
     Route: 067
     Dates: start: 20100601, end: 20110222

REACTIONS (4)
  - ANKLE FRACTURE [None]
  - PATELLA FRACTURE [None]
  - PAIN IN EXTREMITY [None]
  - DEEP VEIN THROMBOSIS [None]
